FAERS Safety Report 6918698-2 (Version None)
Quarter: 2010Q3

REPORT INFORMATION
  Report Type: 
  Country: None (occurrence: None)
  Receive Date: 20100811
  Receipt Date: 20100729
  Transmission Date: 20110219
  Serious: Yes (Other)
  Sender: FDA-Public Use
  Company Number: PHHY2010JP45109

PATIENT
  Age: 96 Year
  Sex: Female

DRUGS (11)
  1. LAMISIL [Suspect]
     Indication: ONYCHOMYCOSIS
     Dosage: 125 MG, UNK
     Route: 048
     Dates: start: 20100510, end: 20100707
  2. FAMOTIDINE [Concomitant]
     Dosage: UNK
     Route: 048
  3. EXCEGRAN [Concomitant]
     Dosage: UNK
     Route: 048
  4. PHENOBARBITAL SODIUM 100MG CAP [Concomitant]
     Dosage: UNK
     Route: 048
  5. THYRADIN S [Concomitant]
     Dosage: UNK
     Route: 048
  6. LANIRAPID [Concomitant]
     Dosage: UNK
     Route: 048
  7. CYTARABINE [Concomitant]
     Dosage: UNK
     Route: 048
  8. LASIX [Concomitant]
     Dosage: UNK
     Route: 048
  9. FRANDOL [Concomitant]
     Dosage: UNK
     Route: 061
  10. MAGNESIUM OXIDE [Concomitant]
     Dosage: UNK
  11. WARFARIN SODIUM [Concomitant]
     Dosage: UNK
     Route: 048

REACTIONS (11)
  - ALANINE AMINOTRANSFERASE INCREASED [None]
  - ASPARTATE AMINOTRANSFERASE INCREASED [None]
  - ASTHENIA [None]
  - ASTHMA [None]
  - BLOOD CREATINE PHOSPHOKINASE INCREASED [None]
  - GAMMA-GLUTAMYLTRANSFERASE INCREASED [None]
  - MALAISE [None]
  - MYALGIA [None]
  - MYOGLOBIN BLOOD INCREASED [None]
  - RHABDOMYOLYSIS [None]
  - SCIATICA [None]
